FAERS Safety Report 8888653 (Version 1)
Quarter: 2012Q4

REPORT INFORMATION
  Report Type: Report from Study
  Country: AT (occurrence: AT)
  Receive Date: 20121106
  Receipt Date: 20121106
  Transmission Date: 20130627
  Serious: Yes (Hospitalization, Other)
  Sender: FDA-Public Use
  Company Number: AT-AMGEN-AUTCT2012018957

PATIENT
  Age: 70 Year
  Sex: Female

DRUGS (3)
  1. DENOSUMAB [Suspect]
     Indication: BONE DENSITY DECREASED
     Dosage: UNK
     Route: 058
     Dates: start: 20101125
  2. ACEMIN [Concomitant]
     Indication: HYPERTENSION
     Dosage: UNK
  3. MAXI-KALZ VIT D3 [Concomitant]
     Dosage: UNK UNK, qd
     Dates: start: 20101116

REACTIONS (4)
  - Hyperparathyroidism [Unknown]
  - Intervertebral disc degeneration [Unknown]
  - Goitre [Unknown]
  - Osteoarthritis [Recovered/Resolved]
